FAERS Safety Report 9342192 (Version 1)
Quarter: 2013Q2

REPORT INFORMATION
  Report Type: Spontaneous
  Country: US (occurrence: US)
  Receive Date: 20130611
  Receipt Date: 20130611
  Transmission Date: 20140414
  Serious: No
  Sender: FDA-Public Use
  Company Number: US-BIOGENIDEC-2013BI044725

PATIENT
  Sex: Female

DRUGS (14)
  1. AVONEX [Suspect]
     Indication: MULTIPLE SCLEROSIS
     Route: 030
     Dates: start: 19980222
  2. AVONEX [Suspect]
     Indication: MULTIPLE SCLEROSIS
     Route: 030
     Dates: start: 20120525, end: 201302
  3. AVONEX [Suspect]
     Indication: MULTIPLE SCLEROSIS
     Route: 030
     Dates: start: 20130219
  4. GABAPENTIN [Concomitant]
  5. TRAMADOL [Concomitant]
  6. FOLIC ACID [Concomitant]
  7. TOPIRAMATE [Concomitant]
  8. OXIBUTYNIN [Concomitant]
  9. IBUPROFEN [Concomitant]
  10. CALCIUM [Concomitant]
  11. VITAMIN D [Concomitant]
  12. BACLOFEN [Concomitant]
  13. DICLOFENAC [Concomitant]
  14. IRON PILLS [Concomitant]

REACTIONS (5)
  - Fall [Recovered/Resolved]
  - Excoriation [Unknown]
  - Head injury [Unknown]
  - Headache [Not Recovered/Not Resolved]
  - Diarrhoea [Recovered/Resolved]
